FAERS Safety Report 20787663 (Version 2)
Quarter: 2023Q2

REPORT INFORMATION
  Report Type: Spontaneous
  Country: CN (occurrence: CN)
  Receive Date: 20220505
  Receipt Date: 20230408
  Transmission Date: 20230722
  Serious: Yes (Death, Other)
  Sender: FDA-Public Use
  Company Number: CN-JNJFOC-20220457568

PATIENT
  Sex: Male

DRUGS (1)
  1. ERLEADA [Suspect]
     Active Substance: APALUTAMIDE
     Indication: Prostate cancer metastatic
     Dosage: 120 TABLETS/BOTTLE/BOX.
     Route: 048

REACTIONS (2)
  - Systemic infection [Fatal]
  - Toxic epidermal necrolysis [Unknown]

NARRATIVE: CASE EVENT DATE: 20220501
